FAERS Safety Report 20246094 (Version 4)
Quarter: 2022Q1

REPORT INFORMATION
  Report Type: Other
  Country: DE (occurrence: DE)
  Receive Date: 20211229
  Receipt Date: 20220324
  Transmission Date: 20220424
  Serious: Yes (Hospitalization, Other)
  Sender: FDA-Public Use
  Company Number: DE-MACLEODS PHARMACEUTICALS US LTD-MAC2021033889

PATIENT

DRUGS (11)
  1. CANDESARTAN [Suspect]
     Active Substance: CANDESARTAN
     Indication: Parkinson^s disease
     Dosage: 16 MILLIGRAM, QD, CILEXETIL
     Route: 065
  2. OLANZAPINE [Suspect]
     Active Substance: OLANZAPINE
     Indication: Parkinson^s disease
     Dosage: 15 MILLIGRAM, QD
     Route: 065
  3. PANTOPRAZOLE SODIUM [Suspect]
     Active Substance: PANTOPRAZOLE SODIUM
     Indication: Parkinson^s disease
     Dosage: 20 MILLIGRAM, QD
     Route: 065
  4. IBUPROFEN [Suspect]
     Active Substance: IBUPROFEN
     Indication: Parkinson^s disease
     Dosage: 200 MILLIGRAM, TID (600 MG DAILY)
     Route: 065
  5. LEVOTHYROXINE [Suspect]
     Active Substance: LEVOTHYROXINE
     Indication: Parkinson^s disease
     Dosage: 62.5 MICROGRAM, QD
     Route: 016
  6. MIRTAZAPINE [Suspect]
     Active Substance: MIRTAZAPINE
     Indication: Parkinson^s disease
     Dosage: 30 MILLIGRAM, QD
     Route: 065
  7. ALENDRONIC ACID [Suspect]
     Active Substance: ALENDRONIC ACID
     Indication: Parkinson^s disease
     Dosage: 70 MILLIGRAM, Q.W.
     Route: 065
  8. CHOLECALCIFEROL [Suspect]
     Active Substance: CHOLECALCIFEROL
     Indication: Parkinson^s disease
     Dosage: 1000 INTERNATIONAL UNIT, QD(1 INTERNATIONAL UNIT, QD)
     Route: 065
  9. URSODIOL [Suspect]
     Active Substance: URSODIOL
     Indication: Parkinson^s disease
     Dosage: 500 MILLIGRAM, QD
     Route: 065
  10. METAMIZOLE [Suspect]
     Active Substance: METAMIZOLE
     Indication: Parkinson^s disease
     Dosage: 500 MILLIGRAM, BID (1000 MG DAILY)
     Route: 065
  11. DOXEPIN [Suspect]
     Active Substance: DOXEPIN
     Indication: Insomnia
     Dosage: 12.5 MILLIGRAM, QD
     Route: 065

REACTIONS (4)
  - Major depression [Unknown]
  - Psychotic symptom [Unknown]
  - Insomnia [Unknown]
  - Drug ineffective [Recovered/Resolved]
